FAERS Safety Report 7649345-2 (Version None)
Quarter: 2011Q3

REPORT INFORMATION
  Report Type: 
  Country: None (occurrence: None)
  Receive Date: 20110802
  Receipt Date: 20110729
  Transmission Date: 20111222
  Serious: Yes (Life-Threatening, Hospitalization)
  Sender: FDA-Public Use
  Company Number: PHHY2011GB68092

PATIENT
  Age: 55 Year
  Sex: Male

DRUGS (2)
  1. CAPECITABINE [Suspect]
     Indication: COLON CANCER
     Route: 065
  2. OXALIPLATIN [Suspect]
     Indication: COLON CANCER
     Route: 065

REACTIONS (5)
  - ACUTE CORONARY SYNDROME [None]
  - VASCULAR STENOSIS [None]
  - ARTERIOSPASM CORONARY [None]
  - CHEST PAIN [None]
  - ACUTE MYOCARDIAL INFARCTION [None]
